FAERS Safety Report 7967032-8 (Version None)
Quarter: 2011Q4

REPORT INFORMATION
  Report Type: 
  Country: None (occurrence: None)
  Receive Date: 20111207
  Receipt Date: 20111207
  Transmission Date: 20120403
  Serious: Yes (Hospitalization)
  Sender: FDA-Public Use
  Company Number: None

PATIENT
  Age: 46 Year
  Sex: Male
  Weight: 114.3 kg

DRUGS (3)
  1. LAMOTRIGINE [Suspect]
     Indication: BIPOLAR I DISORDER
     Dosage: 150 MG BID PO
     Route: 048
     Dates: start: 20081112, end: 20111007
  2. LAMOTRIGINE [Suspect]
     Indication: POST-TRAUMATIC STRESS DISORDER
     Dosage: 150 MG BID PO
     Route: 048
     Dates: start: 20081112, end: 20111007
  3. LAMOTRIGINE [Suspect]
     Indication: DEPRESSION
     Dosage: 150 MG BID PO
     Route: 048
     Dates: start: 20081112, end: 20111007

REACTIONS (3)
  - TREATMENT NONCOMPLIANCE [None]
  - ANGIOEDEMA [None]
  - DRUG HYPERSENSITIVITY [None]
